FAERS Safety Report 19081355 (Version 1)
Quarter: 2021Q2

REPORT INFORMATION
  Report Type: Spontaneous
  Country: TR (occurrence: TR)
  Receive Date: 20210401
  Receipt Date: 20210401
  Transmission Date: 20210717
  Serious: Yes (Other)
  Sender: FDA-Public Use
  Company Number: TR-LUPIN PHARMACEUTICALS INC.-2021-03996

PATIENT
  Age: 9 Year
  Sex: Female

DRUGS (18)
  1. HYDROCORTISONE. [Suspect]
     Active Substance: HYDROCORTISONE
     Indication: COVID-19 PNEUMONIA
     Dosage: 200 MILLIGRAM
     Route: 065
  2. METHOTREXATE. [Concomitant]
     Active Substance: METHOTREXATE
     Indication: ACUTE LYMPHOCYTIC LEUKAEMIA
     Dosage: UNK?SECOND HIGH?RISK BLOCK THERAPY
     Route: 037
  3. SULFAMETHOXAZOLE;TRIMETHOPRIM [Concomitant]
     Active Substance: SULFAMETHOXAZOLE\TRIMETHOPRIM
     Indication: ANTIBIOTIC THERAPY
     Dosage: UNK
     Route: 065
  4. FRESH FROZEN PLASMA [Concomitant]
     Active Substance: HUMAN PLASMA
     Indication: FLUID REPLACEMENT
     Dosage: UNK
     Route: 065
  5. FAVIPIRAVIR [Suspect]
     Active Substance: FAVIPIRAVIR
     Indication: COVID-19 PNEUMONIA
     Dosage: 1600 MILLIGRAM
     Route: 065
  6. TOCILIZUMAB. [Suspect]
     Active Substance: TOCILIZUMAB
     Indication: COVID-19 PNEUMONIA
     Dosage: 400 MILLIGRAM
     Route: 065
  7. VITAMIN C [Suspect]
     Active Substance: ASCORBIC ACID
     Indication: COVID-19 PNEUMONIA
     Dosage: UNK
     Route: 065
  8. CYTARABINE. [Suspect]
     Active Substance: CYTARABINE
     Indication: ACUTE LYMPHOCYTIC LEUKAEMIA
     Dosage: UNK (SECOND HIGH?RISK BLOCK THERAPY)
     Route: 065
  9. CYCLOPHOSPHAMIDE. [Concomitant]
     Active Substance: CYCLOPHOSPHAMIDE
     Indication: ACUTE LYMPHOCYTIC LEUKAEMIA
     Dosage: UNK?SECOND HIGH?RISK BLOCK THERAPY
     Route: 065
  10. VINCRISTINE [Concomitant]
     Active Substance: VINCRISTINE
     Indication: ACUTE LYMPHOCYTIC LEUKAEMIA
     Dosage: UNK?SECOND HIGH?RISK BLOCK THERAPY
     Route: 065
  11. GANCICLOVIR. [Concomitant]
     Active Substance: GANCICLOVIR
     Indication: ANTIBIOTIC THERAPY
     Dosage: UNK
     Route: 065
  12. L?ASPARAGINASE [Concomitant]
     Active Substance: ASPARAGINASE
     Indication: ACUTE LYMPHOCYTIC LEUKAEMIA
     Dosage: UNK?SECOND HIGH?RISK BLOCK THERAPY
     Route: 065
  13. AMPHOTERICIN?B [Concomitant]
     Active Substance: AMPHOTERICIN B
     Indication: ANTIBIOTIC THERAPY
     Dosage: UNK
     Route: 065
  14. MEROPENEM. [Concomitant]
     Active Substance: MEROPENEM
     Indication: ANTIBIOTIC THERAPY
     Dosage: UNK
     Route: 065
  15. VANCOMYCIN [Concomitant]
     Active Substance: VANCOMYCIN
     Indication: ANTIBIOTIC THERAPY
     Dosage: UNK
     Route: 065
  16. IMMUNOGLOBULIN I.V [Concomitant]
     Active Substance: HUMAN IMMUNOGLOBULIN G
     Indication: ACUTE LYMPHOCYTIC LEUKAEMIA
     Dosage: UNK?SECOND HIGH?RISK BLOCK THERAPY
     Route: 042
  17. METHOTREXATE. [Concomitant]
     Active Substance: METHOTREXATE
     Dosage: UNK?SECOND HIGH?RISK BLOCK THERAPY
     Route: 042
  18. DEXAMETHASONE. [Concomitant]
     Active Substance: DEXAMETHASONE
     Indication: ACUTE LYMPHOCYTIC LEUKAEMIA
     Dosage: UNK?SECOND HIGH?RISK BLOCK THERAPY
     Route: 065

REACTIONS (1)
  - Off label use [Unknown]
